FAERS Safety Report 7162175-3 (Version None)
Quarter: 2010Q4

REPORT INFORMATION
  Report Type: 
  Country: None (occurrence: None)
  Receive Date: 20101215
  Receipt Date: 20101206
  Transmission Date: 20110411
  Serious: Yes (Hospitalization)
  Sender: FDA-Public Use
  Company Number: BR-ROCHE-738904

PATIENT
  Sex: Female
  Weight: 66 kg

DRUGS (5)
  1. TOCILIZUMAB [Suspect]
     Indication: RHEUMATOID ARTHRITIS
     Route: 042
     Dates: start: 20090915
  2. METICORTEN [Concomitant]
  3. DIOVAN [Concomitant]
  4. METHOTREXATE [Concomitant]
  5. STILNOX [Concomitant]

REACTIONS (6)
  - ARTHROPATHY [None]
  - CARDIAC DISORDER [None]
  - PAIN IN EXTREMITY [None]
  - PYREXIA [None]
  - SWELLING [None]
  - WEIGHT INCREASED [None]
